FAERS Safety Report 21630600 (Version 1)
Quarter: 2022Q4

REPORT INFORMATION
  Report Type: Report from Study
  Country: CA (occurrence: CA)
  Receive Date: 20221123
  Receipt Date: 20221123
  Transmission Date: 20230112
  Serious: Yes (Hospitalization)
  Sender: FDA-Public Use
  Company Number: CA-BoehringerIngelheim-2022-BI-204166

PATIENT
  Age: 78 Year
  Sex: Male

DRUGS (1)
  1. OFEV [Suspect]
     Active Substance: NINTEDANIB
     Indication: Interstitial lung disease
     Route: 048
     Dates: start: 20221026

REACTIONS (3)
  - Gastrointestinal disorder [Recovered/Resolved]
  - Dysuria [Recovered/Resolved]
  - Malaise [Recovered/Resolved]
